FAERS Safety Report 5547354-0 (Version None)
Quarter: 2007Q4

REPORT INFORMATION
  Report Type: 
  Country: None (occurrence: None)
  Receive Date: 20071128
  Receipt Date: 20061228
  Transmission Date: 20080405
  Serious: Yes (Other)
  Sender: FDA-Public Use
  Company Number: 2006147946

PATIENT
  Age: 78 Year
  Sex: Female
  Weight: 78.5 kg

DRUGS (6)
  1. LIPITOR [Suspect]
     Indication: CORONARY ARTERY BYPASS
     Dates: start: 20060101, end: 20061009
  2. LOPRESSOR [Concomitant]
  3. BENICAR [Concomitant]
  4. ACETYLSALICYLIC ACID SRT [Concomitant]
  5. MULTI-VITAMINS [Concomitant]
  6. GLUCOSAMINE W/CHONDROITIN SULFATES (ASCORBIC ACID, CHONDROITIN SULFATE [Concomitant]

REACTIONS (4)
  - ARTHRITIS [None]
  - CHONDROPATHY [None]
  - CONDITION AGGRAVATED [None]
  - MYALGIA [None]
